FAERS Safety Report 7284114-7 (Version None)
Quarter: 2011Q1

REPORT INFORMATION
  Report Type: 
  Country: None (occurrence: None)
  Receive Date: 20110209
  Receipt Date: 20110203
  Transmission Date: 20110831
  Serious: Yes (Other)
  Sender: FDA-Public Use
  Company Number: JP-PFIZER INC-2010174071

PATIENT
  Age: 22 Year
  Sex: Male
  Weight: 120 kg

DRUGS (3)
  1. ZYVOX [Suspect]
     Indication: STAPHYLOCOCCAL INFECTION
     Dosage: 600 MG, 2X/DAY
     Route: 041
     Dates: start: 20101126, end: 20101207
  2. MEROPENEM [Concomitant]
     Indication: PANCREATITIS NECROTISING
     Dosage: 0.5 G, 3X/DAY
     Route: 041
     Dates: start: 20101125, end: 20101216
  3. FOY [Concomitant]
     Indication: PANCREATITIS NECROTISING
     Dosage: UNK
     Route: 042
     Dates: start: 20101207, end: 20101213

REACTIONS (1)
  - HEARING IMPAIRED [None]
